FAERS Safety Report 5150834-3 (Version None)
Quarter: 2006Q4

REPORT INFORMATION
  Report Type: 
  Country: None (occurrence: None)
  Receive Date: 20061114
  Receipt Date: 20061102
  Transmission Date: 20070319
  Serious: Yes (Other)
  Sender: FDA-Public Use
  Company Number: CA-ELI_LILLY_AND_COMPANY-CA200611001622

PATIENT
  Sex: Male

DRUGS (1)
  1. XIGRIS [Suspect]
     Dates: start: 20061001, end: 20061001

REACTIONS (2)
  - ACUTE RESPIRATORY DISTRESS SYNDROME [None]
  - GASTROINTESTINAL HAEMORRHAGE [None]
